FAERS Safety Report 10176879 (Version 1)
Quarter: 2014Q2

REPORT INFORMATION
  Report Type: Spontaneous
  Country: NL (occurrence: NL)
  Receive Date: 20140516
  Receipt Date: 20140516
  Transmission Date: 20141212
  Serious: Yes (Hospitalization)
  Sender: FDA-Public Use
  Company Number: NL-IPSEN BIOPHARMACEUTICALS, INC.-2014-2303

PATIENT
  Age: 59 Year
  Sex: Male

DRUGS (1)
  1. SOMATULINE AUTOSOLUTION 120MG [Suspect]
     Indication: NEUROENDOCRINE TUMOUR
     Route: 058
     Dates: start: 20130424

REACTIONS (4)
  - Arrhythmia [Recovered/Resolved]
  - Cardiac valve disease [Recovered/Resolved]
  - Radiotherapy [Recovered/Resolved]
  - Inappropriate schedule of drug administration [Unknown]
